FAERS Safety Report 9366064 (Version 2)
Quarter: 2013Q3

REPORT INFORMATION
  Report Type: Spontaneous
  Country: DE (occurrence: DE)
  Receive Date: 20130625
  Receipt Date: 20130705
  Transmission Date: 20140515
  Serious: Yes (Hospitalization, Other)
  Sender: FDA-Public Use
  Company Number: DE-NOVOPROD-380789

PATIENT
  Age: 58 Year
  Sex: Male
  Weight: 101.5 kg

DRUGS (2)
  1. NORDITROPIN FLEXPRO [Suspect]
     Indication: GROWTH HORMONE DEFICIENCY
     Dosage: 0.2 MG, QD
     Route: 058
     Dates: start: 20100416
  2. TESTOSTERONE [Suspect]
     Indication: GONADOTROPHIN DEFICIENCY
     Dosage: 250 MG, EVERY 4TH WEEK
     Route: 030
     Dates: start: 20070511

REACTIONS (1)
  - Benign prostatic hyperplasia [Recovered/Resolved]
